FAERS Safety Report 19901533 (Version 3)
Quarter: 2021Q4

REPORT INFORMATION
  Report Type: Report from Study
  Country: ES (occurrence: None)
  Receive Date: 20210930
  Receipt Date: 20211221
  Transmission Date: 20220304
  Serious: Yes (Other)
  Sender: FDA-Public Use
  Company Number: ES-ROCHE-2916404

PATIENT

DRUGS (7)
  1. TOCILIZUMAB [Suspect]
     Active Substance: TOCILIZUMAB
     Indication: COVID-19 pneumonia
     Dosage: 8 MG/KG IN PATIENTS WEIGHING  30 KG OR 12 MG/KG IN PATIENTS WEIGHING 30 KG AS A 60-MINUTE IV INFUSIO
     Route: 042
     Dates: start: 20200424
  2. BEMIPARIN [Concomitant]
     Active Substance: BEMIPARIN
     Indication: Thrombosis prophylaxis
     Dates: start: 20200424, end: 20200429
  3. OMEPRAZOLE [Concomitant]
     Active Substance: OMEPRAZOLE
     Dates: start: 20200424, end: 20200429
  4. METHYLPREDNISOLONE [Concomitant]
     Active Substance: METHYLPREDNISOLONE
     Indication: COVID-19
     Dates: start: 20200424, end: 20200428
  5. BUDESONIDE [Concomitant]
     Active Substance: BUDESONIDE
     Indication: COVID-19
     Dates: start: 20200424, end: 20200429
  6. ALBUTEROL [Concomitant]
     Active Substance: ALBUTEROL
     Indication: COVID-19
     Dates: start: 20200424, end: 20200429
  7. ACETAMINOPHEN [Concomitant]
     Active Substance: ACETAMINOPHEN
     Indication: COVID-19
     Dates: start: 20200424, end: 20200429

REACTIONS (1)
  - Bronchospasm [Recovered/Resolved]

NARRATIVE: CASE EVENT DATE: 20200424
